FAERS Safety Report 22359461 (Version 4)
Quarter: 2023Q2

REPORT INFORMATION
  Report Type: Report from Study
  Country: US (occurrence: US)
  Receive Date: 20230524
  Receipt Date: 20230605
  Transmission Date: 20230722
  Serious: No
  Sender: FDA-Public Use
  Company Number: US-002147023-NVSC2023US116298

PATIENT
  Sex: Male
  Weight: 80.29 kg

DRUGS (1)
  1. COSENTYX [Suspect]
     Active Substance: SECUKINUMAB
     Indication: Psoriasis
     Dosage: UNK
     Route: 065
     Dates: end: 202202

REACTIONS (7)
  - Psoriasis [Unknown]
  - Erythema [Unknown]
  - Skin exfoliation [Unknown]
  - Skin plaque [Unknown]
  - Pruritus [Unknown]
  - Arthralgia [Unknown]
  - Drug ineffective [Unknown]
